FAERS Safety Report 10815005 (Version 3)
Quarter: 2015Q3

REPORT INFORMATION
  Report Type: Spontaneous
  Country: BR (occurrence: BR)
  Receive Date: 20150218
  Receipt Date: 20150828
  Transmission Date: 20151125
  Serious: Yes (Other)
  Sender: FDA-Public Use
  Company Number: BR-ABBVIE-15P-020-1348856-00

PATIENT
  Age: 74 Year
  Sex: Male
  Weight: 68 kg

DRUGS (1)
  1. CREON [Suspect]
     Active Substance: PANCRELIPASE AMYLASE\PANCRELIPASE LIPASE\PANCRELIPASE PROTEASE
     Indication: DIABETES MELLITUS
     Dosage: 75000 IU DAILY; FREQUENCY:AFTER BREAKFAST, AFTER LUNCH AND AFTER DINNER
     Route: 048
     Dates: start: 2011

REACTIONS (6)
  - Osteoarthritis [Not Recovered/Not Resolved]
  - Vision blurred [Recovered/Resolved]
  - Abdominal discomfort [Recovered/Resolved]
  - Arthritis [Not Recovered/Not Resolved]
  - Accidental overdose [Recovered/Resolved]
  - Hyperhidrosis [Unknown]

NARRATIVE: CASE EVENT DATE: 20150209
